FAERS Safety Report 4600515-7 (Version None)
Quarter: 2005Q1

REPORT INFORMATION
  Report Type: 
  Country: None (occurrence: None)
  Receive Date: 20050304
  Receipt Date: 20050216
  Transmission Date: 20050727
  Serious: Yes (Disabling)
  Sender: FDA-Public Use
  Company Number: 2004118129

PATIENT
  Sex: Female

DRUGS (5)
  1. CELEBREX [Suspect]
     Indication: SPINAL OSTEOARTHRITIS
     Dates: start: 20000101
  2. ROFECOXIB [Suspect]
     Indication: ILL-DEFINED DISORDER
  3. NSAID'S (NSAID'S) [Suspect]
     Indication: ILL-DEFINED DISORDER
  4. GABAPENTIN [Concomitant]
  5. SERTRALINE HCL [Concomitant]

REACTIONS (5)
  - DRUG INEFFECTIVE [None]
  - INADEQUATE ANALGESIA [None]
  - PAIN [None]
  - RENAL FAILURE [None]
  - RENAL IMPAIRMENT [None]
